FAERS Safety Report 10507871 (Version 1)
Quarter: 2014Q4

REPORT INFORMATION
  Report Type: Spontaneous
  Country: US (occurrence: None)
  Receive Date: 20141008
  Receipt Date: 20141008
  Transmission Date: 20150528
  Serious: Yes (Life-Threatening, Disabling, Other)
  Sender: FDA-Public Use
  Company Number: None

PATIENT
  Age: 64 Year
  Sex: Male
  Weight: 74.84 kg

DRUGS (1)
  1. LISINOPRIL. [Suspect]
     Active Substance: LISINOPRIL
     Indication: BLOOD PRESSURE
     Route: 048
     Dates: start: 20140823, end: 20141007

REACTIONS (7)
  - Vomiting [None]
  - Condition aggravated [None]
  - Cough [None]
  - Nausea [None]
  - Hiatus hernia [None]
  - Drug effect decreased [None]
  - Regurgitation [None]

NARRATIVE: CASE EVENT DATE: 20141007
